FAERS Safety Report 6857501-6 (Version None)
Quarter: 2010Q3

REPORT INFORMATION
  Report Type: 
  Country: None (occurrence: None)
  Receive Date: 20100719
  Receipt Date: 20100712
  Transmission Date: 20110219
  Serious: Yes (Hospitalization, Other)
  Sender: FDA-Public Use
  Company Number: BR-ABBOTT-09P-020-0607105-00

PATIENT
  Age: 33 Year
  Sex: Male

DRUGS (4)
  1. HUMIRA [Suspect]
     Indication: ANKYLOSING SPONDYLITIS
     Dosage: INDUCTION DOSE 80 MILLIGRAMS
  2. HUMIRA [Suspect]
     Dosage: 14 DAYS LATER
  3. HUMIRA [Suspect]
     Dosage: MAINTENANCE DOSE Q 15 DAYS
  4. UNKNOWN CORTICOID [Concomitant]
     Indication: PRODUCT USED FOR UNKNOWN INDICATION

REACTIONS (2)
  - INTESTINAL OBSTRUCTION [None]
  - TUBERCULOSIS GASTROINTESTINAL [None]
